FAERS Safety Report 24008244 (Version 1)
Quarter: 2024Q2

REPORT INFORMATION
  Report Type: Spontaneous
  Country: JP (occurrence: JP)
  Receive Date: 20240625
  Receipt Date: 20240625
  Transmission Date: 20240716
  Serious: Yes (Other)
  Sender: FDA-Public Use
  Company Number: JP-HALOCARBON LIFE SCIENCES, LLC-20240600005

PATIENT

DRUGS (6)
  1. SEVOFLURANE [Suspect]
     Active Substance: SEVOFLURANE
     Indication: Maintenance of anaesthesia
  2. PROPOFOL [Suspect]
     Active Substance: PROPOFOL
     Indication: Anaesthesia
     Dosage: 2 MILLIGRAM/KILOGRAM, BOLUS
  3. ROCURONIUM [Suspect]
     Active Substance: ROCURONIUM BROMIDE
     Dosage: 0.8 MILLIGRAM/KILOGRAM
  4. FENTANYL [Suspect]
     Active Substance: FENTANYL\FENTANYL CITRATE
     Dosage: 0.2 MICROGRAM/KILOGRAM
  5. REMIFENTANIL [Concomitant]
     Active Substance: REMIFENTANIL
     Dosage: 0.2-0.4  ?G/KG/MIN
  6. Ringer Acetat [Concomitant]
     Route: 042

REACTIONS (1)
  - Lactic acidosis [Recovered/Resolved]
